FAERS Safety Report 7005000-3 (Version None)
Quarter: 2010Q3

REPORT INFORMATION
  Report Type: 
  Country: None (occurrence: None)
  Receive Date: 20100921
  Receipt Date: 20100908
  Transmission Date: 20110219
  Serious: Yes (Hospitalization)
  Sender: FDA-Public Use
  Company Number: FR-CELGENEUS-056-C5013-10090648

PATIENT
  Sex: Male
  Weight: 52 kg

DRUGS (7)
  1. THALIDOMIDE [Suspect]
     Indication: MULTIPLE MYELOMA
     Route: 048
     Dates: start: 20100414
  2. THALIDOMIDE [Suspect]
     Route: 048
     Dates: start: 20100830, end: 20100902
  3. MELPHALAN HYDROCHLORIDE [Suspect]
     Indication: MULTIPLE MYELOMA
     Route: 065
     Dates: start: 20100414
  4. MELPHALAN HYDROCHLORIDE [Suspect]
     Route: 065
     Dates: start: 20100830, end: 20100902
  5. PREDNISONE [Suspect]
     Indication: MULTIPLE MYELOMA
     Route: 065
     Dates: start: 20100414
  6. PREDNISONE [Suspect]
     Route: 065
     Dates: start: 20100830, end: 20100902
  7. ASPERGIC [Concomitant]
     Indication: THROMBOSIS PROPHYLAXIS
     Route: 048
     Dates: start: 20100414

REACTIONS (4)
  - GENERAL PHYSICAL HEALTH DETERIORATION [None]
  - OROPHARYNGEAL CANDIDIASIS [None]
  - VOMITING [None]
  - WEIGHT DECREASED [None]
